FAERS Safety Report 10076218 (Version 2)
Quarter: 2014Q2

REPORT INFORMATION
  Report Type: Spontaneous
  Country: IT (occurrence: IT)
  Receive Date: 20140414
  Receipt Date: 20140421
  Transmission Date: 20141212
  Serious: Yes (Hospitalization)
  Sender: FDA-Public Use
  Company Number: IT-009507513-1404ITA006741

PATIENT
  Age: 21 Year
  Sex: Female

DRUGS (8)
  1. TRIMETON [Suspect]
     Indication: POISONING
     Dosage: 40 MG DAILY
     Route: 048
     Dates: start: 20140219, end: 20140219
  2. METRONIDAZOLE [Suspect]
     Indication: POISONING
     Dosage: 2500 MG DAILY
     Route: 048
     Dates: start: 20140219, end: 20140219
  3. METFORMIN [Suspect]
     Indication: POISONING
     Dosage: 2500 MG DAILY
     Route: 048
     Dates: start: 20140219, end: 20140219
  4. DICLOFENAC [Suspect]
     Indication: POISONING
     Dosage: 500 MG DAILY
     Route: 048
     Dates: start: 20140219, end: 20140219
  5. SIMVASTATIN [Suspect]
     Indication: POISONING
     Dosage: 560 MG DAILY
     Route: 048
     Dates: start: 20140219, end: 20140219
  6. PLASIL [Suspect]
     Indication: POISONING
     Dosage: 20 MG DAILY
     Route: 048
     Dates: start: 20140219, end: 20140219
  7. COEFFERALGAN [Suspect]
     Indication: POISONING
     Dosage: 4000 MG DAILY
     Route: 048
     Dates: start: 20140219, end: 20140219
  8. RAMIPRIL ACTAVIS [Suspect]
     Indication: POISONING
     Dosage: 20 MG DAILY
     Route: 048
     Dates: start: 20140219, end: 20140219

REACTIONS (1)
  - Poisoning [Recovered/Resolved]
